FAERS Safety Report 6084313-6 (Version None)
Quarter: 2009Q1

REPORT INFORMATION
  Report Type: 
  Country: None (occurrence: None)
  Receive Date: 20090217
  Receipt Date: 20090217
  Transmission Date: 20090719
  Serious: Yes (Death, Hospitalization)
  Sender: FDA-Public Use
  Company Number: None

PATIENT
  Age: 47 Year
  Sex: Male
  Weight: 78.0187 kg

DRUGS (2)
  1. TRUVADA [Suspect]
     Indication: HIV INFECTION
     Dosage: 200/300 MILLIGRAMS 1 TABLET DAILY ORALLY
     Route: 048
     Dates: start: 20070322, end: 20081024
  2. SUSTIVA [Suspect]
     Indication: HIV INFECTION
     Dosage: 500 MILLIGRAMS 1 TABLET DAILY ORALLY
     Route: 048
     Dates: start: 20070322, end: 20081024

REACTIONS (17)
  - ACIDOSIS [None]
  - ASCITES [None]
  - BLOOD POTASSIUM INCREASED [None]
  - DIVERTICULUM INTESTINAL [None]
  - GENERAL PHYSICAL HEALTH DETERIORATION [None]
  - HAEMATEMESIS [None]
  - HEPATIC FAILURE [None]
  - HEPATITIS [None]
  - LACTIC ACIDOSIS [None]
  - MENTAL STATUS CHANGES [None]
  - MULTI-ORGAN FAILURE [None]
  - OXYGEN SATURATION DECREASED [None]
  - RENAL FAILURE ACUTE [None]
  - RESPIRATORY DISTRESS [None]
  - SINUS TACHYCARDIA [None]
  - TACHYCARDIA [None]
  - THERAPEUTIC AGENT TOXICITY [None]
